FAERS Safety Report 10900422 (Version 1)
Quarter: 2015Q1

REPORT INFORMATION
  Report Type: Spontaneous
  Country: US (occurrence: None)
  Receive Date: 20150303
  Receipt Date: 20150303
  Transmission Date: 20150721
  Serious: No
  Sender: FDA-Public Use
  Company Number: None

PATIENT
  Age: 57 Year
  Sex: Female
  Weight: 78.47 kg

DRUGS (1)
  1. PHENTERMINE [Suspect]
     Active Substance: PHENTERMINE
     Indication: OBESITY
     Dosage: TAKE T TABLET BY MOUTH EVERY MORNING
     Route: 048
     Dates: start: 20140219, end: 20150201

REACTIONS (4)
  - Retinal tear [None]
  - Contusion [None]
  - Road traffic accident [None]
  - Amnesia [None]

NARRATIVE: CASE EVENT DATE: 20141216
